FAERS Safety Report 25686541 (Version 1)
Quarter: 2025Q3

REPORT INFORMATION
  Report Type: Spontaneous
  Country: US (occurrence: US)
  Receive Date: 20250816
  Receipt Date: 20250816
  Transmission Date: 20251020
  Serious: No
  Sender: DIFGEN PHARMACEUTICALS LLC
  Company Number: US-Difgen-012107

PATIENT

DRUGS (1)
  1. BUPRENORPHINE HYDROCHLORIDE\NALOXONE HYDROCHLORIDE [Suspect]
     Active Substance: BUPRENORPHINE HYDROCHLORIDE\NALOXONE HYDROCHLORIDE
     Indication: Product used for unknown indication
     Dosage: BUPRENORPHINE AND NALOXONE SUBLINGUAL FILM 8/2MG
     Route: 060
     Dates: start: 2025

REACTIONS (2)
  - Drug ineffective [Unknown]
  - Product substitution issue [Unknown]
